FAERS Safety Report 13792776 (Version 3)
Quarter: 2017Q4

REPORT INFORMATION
  Report Type: Spontaneous
  Country: FR (occurrence: FR)
  Receive Date: 20170725
  Receipt Date: 20171107
  Transmission Date: 20180320
  Serious: Yes (Death)
  Sender: FDA-Public Use
  Company Number: FR-ROCHE-1966790

PATIENT
  Age: 34 Year
  Sex: Female

DRUGS (21)
  1. LEPONEX [Suspect]
     Active Substance: CLOZAPINE
     Route: 048
     Dates: start: 200806
  2. TERALITHE [Suspect]
     Active Substance: LITHIUM CARBONATE
     Route: 048
     Dates: start: 20170511
  3. LOVENOX [Suspect]
     Active Substance: ENOXAPARIN SODIUM
     Indication: PRODUCT USED FOR UNKNOWN INDICATION
     Dosage: ANTI-XA/0.4 ML
     Route: 058
     Dates: start: 20170504
  4. KLEAN-PREP [Concomitant]
     Active Substance: ELECTROLYTES NOS\POLYETHYLENE GLYCOL 3350
     Indication: CONSTIPATION
     Dosage: 1 IN 1 ON REQUEST?MOST RECENT ADMINISTRATION ON 19/MAY/2017
     Route: 048
     Dates: start: 20170216
  5. FUMAFER [Concomitant]
     Active Substance: FERROUS FUMARATE
     Indication: IRON DEFICIENCY
     Route: 048
     Dates: start: 20160725
  6. OFLOCET [Concomitant]
     Active Substance: OFLOXACIN
     Route: 065
     Dates: start: 20170608, end: 20170610
  7. TERALITHE [Suspect]
     Active Substance: LITHIUM CARBONATE
     Indication: PSYCHOTIC DISORDER
     Route: 048
     Dates: start: 20170531
  8. TERALITHE [Suspect]
     Active Substance: LITHIUM CARBONATE
     Route: 048
     Dates: start: 201407, end: 20170321
  9. VALIUM [Suspect]
     Active Substance: DIAZEPAM
     Indication: PSYCHOTIC DISORDER
     Dosage: FORM OF ADMINISTRATION REPORTED AS ORAL DROPS, SOLUTION
     Route: 048
     Dates: start: 20170616
  10. VALIUM [Suspect]
     Active Substance: DIAZEPAM
     Dosage: 20 DROPS
     Route: 048
     Dates: start: 20170609
  11. LAMICTAL [Suspect]
     Active Substance: LAMOTRIGINE
     Indication: EPILEPSY
     Route: 048
     Dates: start: 20170321
  12. SPASFON (FRANCE) [Concomitant]
     Active Substance: PHLOROGLUCINOL\1,3,5-TRIMETHOXYBENZENE
     Indication: ABDOMINAL PAIN
     Dosage: 3 IN 1 ON REQUEST
     Route: 048
     Dates: start: 20170130
  13. NOZINAN [Concomitant]
     Active Substance: LEVOMEPROMAZINE
     Route: 065
     Dates: start: 20170604
  14. VALIUM [Suspect]
     Active Substance: DIAZEPAM
     Dosage: 30 DROPS DAILY
     Route: 048
     Dates: start: 20170529
  15. DEXERYL (FRANCE) [Concomitant]
     Active Substance: GLYCERIN\PARAFFIN
     Indication: PRODUCT USED FOR UNKNOWN INDICATION
     Dosage: 1 IN 1 ON REQUEST
     Route: 065
     Dates: start: 20170130
  16. TERALITHE [Suspect]
     Active Substance: LITHIUM CARBONATE
     Route: 048
     Dates: start: 20170529
  17. LEPONEX [Suspect]
     Active Substance: CLOZAPINE
     Indication: PSYCHOTIC DISORDER
     Route: 048
     Dates: start: 20170509
  18. LEPONEX [Suspect]
     Active Substance: CLOZAPINE
     Route: 048
     Dates: start: 201612
  19. ARTANE [Suspect]
     Active Substance: TRIHEXYPHENIDYL HYDROCHLORIDE
     Indication: EXTRAPYRAMIDAL DISORDER
     Route: 048
     Dates: start: 20170428
  20. LANSOYL FRAMBOISE [Concomitant]
     Active Substance: MINERAL OIL
     Indication: CONSTIPATION
     Route: 048
     Dates: start: 20170327
  21. LEVOTHYROX [Concomitant]
     Active Substance: LEVOTHYROXINE
     Indication: HYPOTHYROIDISM
     Route: 048
     Dates: start: 20170130

REACTIONS (1)
  - Sudden death [Fatal]

NARRATIVE: CASE EVENT DATE: 20170622
